FAERS Safety Report 5247748-7 (Version None)
Quarter: 2007Q1

REPORT INFORMATION
  Report Type: 
  Country: None (occurrence: None)
  Receive Date: 20070227
  Receipt Date: 20070214
  Transmission Date: 20070707
  Serious: Yes (Hospitalization)
  Sender: FDA-Public Use
  Company Number: PHRM2007FR00846

PATIENT
  Age: 77 Year
  Sex: Female
  Weight: 78 kg

DRUGS (4)
  1. GLEEVEC [Suspect]
     Indication: GASTROINTESTINAL STROMAL TUMOUR
     Dosage: 400 MG DAILY
     Route: 048
     Dates: start: 20070204, end: 20070209
  2. DIAMICRON [Concomitant]
     Indication: DIABETES MELLITUS NON-INSULIN-DEPENDENT
  3. MODUCREN [Concomitant]
     Indication: HYPERTENSION
  4. DIOSMINE [Concomitant]
     Indication: OEDEMA

REACTIONS (1)
  - CEREBROVASCULAR ACCIDENT [None]
